FAERS Safety Report 8404828-2 (Version None)
Quarter: 2012Q2

REPORT INFORMATION
  Report Type: 
  Country: None (occurrence: None)
  Receive Date: 20120601
  Receipt Date: 20120523
  Transmission Date: 20120825
  Serious: Yes (Other)
  Sender: FDA-Public Use
  Company Number: US-ASTRAZENECA-2012SE21449

PATIENT
  Age: 58 Year
  Sex: Female

DRUGS (24)
  1. NOVOLOG MIX 70/30 [Concomitant]
     Dosage: 70-30% SUSP AS DIRECTED, MAX DOSE OF 120 QD
  2. FOLTX [Concomitant]
     Dosage: 1-2.5-25 MG, ONE TWO TIMES A DAY
     Route: 048
  3. ASPIRIN [Concomitant]
     Route: 048
  4. VALTREX [Concomitant]
     Dosage: ONE TID AS NEEDED
  5. BYETTA [Concomitant]
     Dosage: 10 MCG/0.4 ML,  AS DIRECTED
  6. BUMEX [Concomitant]
     Route: 048
  7. LANOXIN [Concomitant]
     Route: 048
  8. VITAMIN C [Concomitant]
     Route: 048
  9. BENADRYL [Concomitant]
     Route: 048
  10. PROMETHAZINE [Concomitant]
     Dosage: 25 MG/DOSE, RUB BETWEEN WRISTS Q4-6 HRS PRN
     Route: 061
  11. AMOXICILLIN AND CLAVULANATE POTASSIUM [Concomitant]
     Dosage: 875/125 MG, ONE TWO TIMES A DAY
     Route: 048
  12. ALTACE [Concomitant]
  13. LORATADINE [Concomitant]
     Indication: HYPERSENSITIVITY
     Route: 048
  14. PULMICORT FLEXHALER [Suspect]
     Route: 055
  15. CRESTOR [Suspect]
     Route: 048
  16. LOPRESSOR [Concomitant]
  17. NITROSTAT [Concomitant]
     Dosage: AS DIRECTED
  18. ZETIA [Concomitant]
     Route: 048
  19. TRILIPIX [Concomitant]
     Route: 048
  20. LOVAZA [Concomitant]
     Dosage: 2 CAPS BID WITH MEALS
  21. NIASPAN [Concomitant]
     Route: 048
  22. SPIRONOLACTONE [Concomitant]
     Route: 048
  23. NEXIUM [Suspect]
     Route: 048
  24. NYSTATIN [Concomitant]
     Dosage: 100000 UNIT/MG , APPLY TO AFFECTED SITE 2-3 DAILY X 10 DAYS

REACTIONS (9)
  - RASH [None]
  - DIZZINESS [None]
  - DRUG HYPERSENSITIVITY [None]
  - TYPE 1 DIABETES MELLITUS [None]
  - COUGH [None]
  - NASAL CONGESTION [None]
  - SINUS DISORDER [None]
  - DIABETIC NEUROPATHY [None]
  - MYOCARDIAL INFARCTION [None]
